FAERS Safety Report 8477216-0 (Version None)
Quarter: 2012Q2

REPORT INFORMATION
  Report Type: 
  Country: None (occurrence: None)
  Receive Date: 20120629
  Receipt Date: 20120625
  Transmission Date: 20120825
  Serious: Yes (Other)
  Sender: FDA-Public Use
  Company Number: US-AMGEN-USASP2012039367

PATIENT
  Age: 75 Year
  Sex: Female

DRUGS (2)
  1. PROLIA [Suspect]
     Indication: OSTEOPOROSIS POSTMENOPAUSAL
     Dosage: 60 MG, Q6MO
     Dates: start: 20120110
  2. ALLERGY MEDICATION [Concomitant]

REACTIONS (6)
  - MYALGIA [None]
  - KNEE ARTHROPLASTY [None]
  - RASH MACULAR [None]
  - DRY SKIN [None]
  - RASH MACULO-PAPULAR [None]
  - ARTHRALGIA [None]
